FAERS Safety Report 20535656 (Version 1)
Quarter: 2022Q1

REPORT INFORMATION
  Report Type: Report from Study
  Country: US (occurrence: US)
  Receive Date: 20220302
  Receipt Date: 20220302
  Transmission Date: 20220423
  Serious: Yes (Other)
  Sender: FDA-Public Use
  Company Number: US-ABBVIE-22K-163-4296920-00

PATIENT
  Sex: Female

DRUGS (1)
  1. HUMIRA [Suspect]
     Active Substance: ADALIMUMAB
     Indication: Psoriatic arthropathy
     Route: 058

REACTIONS (9)
  - Pituitary apoplexy [Unknown]
  - Pituitary tumour [Unknown]
  - Angina unstable [Unknown]
  - Postural orthostatic tachycardia syndrome [Unknown]
  - Carpal tunnel syndrome [Unknown]
  - Rotator cuff syndrome [Unknown]
  - Pulmonary granuloma [Unknown]
  - Type 2 diabetes mellitus [Unknown]
  - Coronary artery disease [Unknown]
